FAERS Safety Report 15223129 (Version 2)
Quarter: 2018Q3

REPORT INFORMATION
  Report Type: Spontaneous
  Country: JP (occurrence: JP)
  Receive Date: 20180731
  Receipt Date: 20180813
  Transmission Date: 20181010
  Serious: Yes (Other)
  Sender: FDA-Public Use
  Company Number: JP-ELI_LILLY_AND_COMPANY-JP201807013298

PATIENT
  Age: 46 Year
  Sex: Male

DRUGS (2)
  1. GOSHAJINKIGAN [Concomitant]
     Active Substance: HERBALS
     Indication: PAIN
     Dosage: UNK UNK, DAILY
     Route: 048
  2. DULOXETINE HYDROCHLORIDE. [Suspect]
     Active Substance: DULOXETINE HYDROCHLORIDE
     Indication: PAIN
     Dosage: 40 MG, DAILY
     Route: 048

REACTIONS (2)
  - Interstitial lung disease [Recovered/Resolved]
  - Off label use [Recovered/Resolved]
